FAERS Safety Report 8559788-0 (Version None)
Quarter: 2012Q3

REPORT INFORMATION
  Report Type: 
  Country: None (occurrence: None)
  Receive Date: 20120802
  Receipt Date: 20120730
  Transmission Date: 20120928
  Serious: No
  Sender: FDA-Public Use
  Company Number: US-PFIZER INC-2012174431

PATIENT
  Sex: Male

DRUGS (2)
  1. INLYTA [Suspect]
     Indication: RENAL NEOPLASM
     Dosage: 5 MG, 2X/DAY
     Dates: start: 20120703
  2. INLYTA [Suspect]
     Dosage: UNK

REACTIONS (1)
  - MENTAL STATUS CHANGES [None]
